FAERS Safety Report 8736528 (Version 3)
Quarter: 2012Q4

REPORT INFORMATION
  Report Type: 
  Country: DE (occurrence: JP)
  Receive Date: 20120822
  Receipt Date: 20121220
  Transmission Date: 20130627
  Serious: Yes (Life-Threatening, Other)
  Sender: FDA-Public Use
  Company Number: JP-BRISTOL-MYERS SQUIBB COMPANY-16859332

PATIENT
  Age: 66 Year
  Sex: Female

DRUGS (5)
  1. METGLUCO [Suspect]
     Indication: DIABETES MELLITUS
     Route: 048
     Dates: start: 20110923, end: 20120724
  2. AMARYL [Concomitant]
     Indication: DIABETES MELLITUS
     Route: 048
     Dates: start: 20090311
  3. ADALAT-CR [Concomitant]
     Indication: HYPERTENSION
     Route: 048
     Dates: start: 20010328
  4. PARIET [Concomitant]
     Indication: GASTRIC ULCER
     Route: 048
     Dates: start: 20100526
  5. BAYASPIRIN [Concomitant]
     Indication: CEREBRAL INFARCTION
     Route: 048
     Dates: start: 20090122

REACTIONS (3)
  - Hepatic function abnormal [Recovered/Resolved]
  - Rhabdomyolysis [Recovered/Resolved]
  - Drug-induced liver injury [Unknown]
